FAERS Safety Report 7371437-6 (Version None)
Quarter: 2011Q1

REPORT INFORMATION
  Report Type: 
  Country: None (occurrence: None)
  Receive Date: 20110316
  Receipt Date: 20110302
  Transmission Date: 20110831
  Serious: Yes (Hospitalization)
  Sender: FDA-Public Use
  Company Number: 2011MA002165

PATIENT
  Age: 74 Year
  Sex: Female

DRUGS (3)
  1. METFORMIN HYDROCHLORIDE [Suspect]
     Dosage: 10 MG, PO
     Route: 048
  2. RAMIPRIL [Concomitant]
  3. PIOGLITAZONE [Concomitant]

REACTIONS (2)
  - PANCREATITIS ACUTE [None]
  - LACTIC ACIDOSIS [None]
